FAERS Safety Report 5447284-9 (Version None)
Quarter: 2007Q3

REPORT INFORMATION
  Report Type: 
  Country: None (occurrence: None)
  Receive Date: 20070910
  Receipt Date: 20070831
  Transmission Date: 20080115
  Serious: Yes (Other)
  Sender: FDA-Public Use
  Company Number: US-JNJFOC-20070900596

PATIENT
  Sex: Female
  Weight: 41.73 kg

DRUGS (5)
  1. CONCERTA [Suspect]
     Indication: ATTENTION DEFICIT/HYPERACTIVITY DISORDER
     Route: 048
  2. COLACE [Concomitant]
  3. MIRALAX [Concomitant]
  4. ZYRTEC [Concomitant]
     Indication: MULTIPLE ALLERGIES
  5. SINGULAIR [Concomitant]
     Indication: MULTIPLE ALLERGIES

REACTIONS (2)
  - HALLUCINATION, AUDITORY [None]
  - HEADACHE [None]
